FAERS Safety Report 10783340 (Version 4)
Quarter: 2015Q3

REPORT INFORMATION
  Report Type: Spontaneous
  Country: US (occurrence: US)
  Receive Date: 20150210
  Receipt Date: 20150821
  Transmission Date: 20151125
  Serious: Yes (Hospitalization, Other)
  Sender: FDA-Public Use
  Company Number: US-GLAXOSMITHKLINE-US2014GSK050220

PATIENT
  Age: 63 Year
  Sex: Female

DRUGS (4)
  1. ONDANSETRON ODT [Concomitant]
     Active Substance: ONDANSETRON
  2. TYKERB [Suspect]
     Active Substance: LAPATINIB DITOSYLATE
     Indication: BREAST CANCER
     Dosage: 1000 MG, 1D
     Route: 048
     Dates: start: 20141126, end: 20141220
  3. ATORVASTATIN CALCIUM. [Concomitant]
     Active Substance: ATORVASTATIN CALCIUM
  4. TYKERB [Suspect]
     Active Substance: LAPATINIB DITOSYLATE
     Dosage: 750 MG, 1D
     Route: 048

REACTIONS (4)
  - Nausea [Unknown]
  - Disease progression [Unknown]
  - Metastases to central nervous system [Unknown]
  - Diarrhoea [Recovering/Resolving]

NARRATIVE: CASE EVENT DATE: 201411
